FAERS Safety Report 13055615 (Version 2)
Quarter: 2017Q2

REPORT INFORMATION
  Report Type: Spontaneous
  Country: GB (occurrence: GB)
  Receive Date: 20161222
  Receipt Date: 20170417
  Transmission Date: 20170830
  Serious: Yes (Hospitalization, Other)
  Sender: FDA-Public Use
  Company Number: GB-PFIZER INC-2016584313

PATIENT
  Age: 28 Year
  Sex: Female

DRUGS (7)
  1. SYNTOMETRINE [Concomitant]
     Active Substance: ERGONOVINE\OXYTOCIN
     Dosage: 1 AMPULE, WAS GIVEN ROUTINELY WITH DELIVERY OF THE ANTERIOR SHOULDER
     Route: 030
  2. CEFUROXIME. [Concomitant]
     Active Substance: CEFUROXIME
     Route: 042
  3. HEPARIN-FRACTION [Concomitant]
     Active Substance: HEPARIN SODIUM
     Dosage: UNK
  4. METHOTREXATE SODIUM. [Suspect]
     Active Substance: METHOTREXATE SODIUM
     Indication: PLACENTA ACCRETA
     Dosage: 50 MG, DAILY (FOR 3 DAYS , TOTAL DOSE 150 MG)
     Route: 030
  5. FOLINIC ACID [Concomitant]
     Active Substance: LEUCOVORIN
     Indication: PLACENTA ACCRETA
     Dosage: 50 MG, ALTERNATE DAY
     Route: 030
  6. FLAGYL [Concomitant]
     Active Substance: METRONIDAZOLE\METRONIDAZOLE HYDROCHLORIDE
     Route: 042
  7. METHOTREXATE SODIUM. [Suspect]
     Active Substance: METHOTREXATE SODIUM
     Dosage: 50 MG, ALTERNATE DAY(THREE DOSES, (50 MG) OVER ALTERNATE DAYS )
     Route: 030

REACTIONS (4)
  - Product use in unapproved indication [Unknown]
  - Vaginal haemorrhage [Unknown]
  - Uterine perforation [Unknown]
  - Abdominal pain lower [Unknown]
